FAERS Safety Report 11776254 (Version 2)
Quarter: 2015Q4

REPORT INFORMATION
  Report Type: Report from Study
  Country: BR (occurrence: BR)
  Receive Date: 20151125
  Receipt Date: 20151203
  Transmission Date: 20160304
  Serious: Yes (Hospitalization)
  Sender: FDA-Public Use
  Company Number: PHHY2015BR153160

PATIENT
  Sex: Female
  Weight: 27 kg

DRUGS (3)
  1. EXJADE [Suspect]
     Active Substance: DEFERASIROX
     Indication: SICKLE CELL ANAEMIA
     Dosage: 20 MG/KG, QD (1 TABLET A DAY)
     Route: 048
     Dates: start: 2013
  2. HYDREA [Concomitant]
     Active Substance: HYDROXYUREA
     Indication: SICKLE CELL ANAEMIA
     Dosage: 1 DF, QOD (1 TABLET ON ONE DAY AND 2 TABLETS ON THE OTHER DAY)
     Route: 048
  3. HORMOTROP [Concomitant]
     Indication: GROWTH RETARDATION
     Dosage: 1 DF, QD
     Route: 058
     Dates: start: 20151127

REACTIONS (5)
  - Back pain [Unknown]
  - Pain in extremity [Unknown]
  - Blood iron increased [Recovered/Resolved]
  - Bone pain [Recovering/Resolving]
  - Arthralgia [Unknown]
